FAERS Safety Report 5120697-0 (Version None)
Quarter: 2006Q4

REPORT INFORMATION
  Report Type: 
  Country: None (occurrence: None)
  Receive Date: 20061003
  Receipt Date: 20061003
  Transmission Date: 20070319
  Serious: No
  Sender: FDA-Public Use
  Company Number: None

PATIENT
  Age: 42 Year
  Sex: Male
  Weight: 80.3 kg

DRUGS (1)
  1. POTASSIUM 10 MEQ SANDOZ [Suspect]
     Indication: ELECTROLYTE SUBSTITUTION THERAPY
     Dosage: 40 MEQ PO QD
     Route: 048
     Dates: start: 20060418

REACTIONS (1)
  - BLOOD POTASSIUM INCREASED [None]
